FAERS Safety Report 10724577 (Version 1)
Quarter: 2015Q1

REPORT INFORMATION
  Report Type: Spontaneous
  Country: RO (occurrence: RO)
  Receive Date: 20150120
  Receipt Date: 20150120
  Transmission Date: 20150721
  Serious: Yes (Hospitalization)
  Sender: FDA-Public Use
  Company Number: RO-MYLANLABS-2015M1000790

PATIENT

DRUGS (8)
  1. KETOROLAC [Interacting]
     Active Substance: KETOROLAC\KETOROLAC TROMETHAMINE
     Indication: PAIN IN EXTREMITY
     Dosage: 30MG/ML, 2 VIALS PER DAY
     Route: 051
  2. PIROXICAM. [Interacting]
     Active Substance: PIROXICAM
     Indication: PAIN IN EXTREMITY
     Dosage: 20MG PER DAY
     Route: 065
  3. BISEPTOL [Interacting]
     Active Substance: SULFAMETHOXAZOLE\TRIMETHOPRIM
     Indication: URINARY TRACT INFECTION
     Dosage: TRIMETHOPRIM-SULFAMETHOXAZOLE: 40/800MG, 3 TABLETS PER DAY FOR 2 WEEKS
     Route: 065
  4. CELECOXIB. [Suspect]
     Active Substance: CELECOXIB
     Indication: PAIN IN EXTREMITY
     Dosage: 200MG PER DAY
     Route: 065
  5. MELOXICAM. [Interacting]
     Active Substance: MELOXICAM
     Indication: PAIN IN EXTREMITY
     Dosage: 15MG, 2 VIALS PER DAY
     Route: 051
  6. DIPYRONE [Interacting]
     Active Substance: DIPYRONE
     Indication: PAIN IN EXTREMITY
     Dosage: 500MG, 2 PILLS PER DAY
     Route: 065
  7. IBUPROFEN. [Interacting]
     Active Substance: IBUPROFEN
     Indication: PAIN IN EXTREMITY
     Dosage: 200MG, PER DAY
     Route: 065
  8. ANTINEVRALGIC [Interacting]
     Active Substance: ASPIRIN\CAFFEINE\PHENACETIN
     Indication: PAIN IN EXTREMITY
     Dosage: ASPIRIN/CAFFEINE/PHENACETIN: 250MG/50MG/150MG; 2 PILLS/DAY
     Route: 065

REACTIONS (2)
  - Rhabdomyolysis [Recovering/Resolving]
  - Drug interaction [Recovering/Resolving]
